FAERS Safety Report 8954737 (Version 1)
Quarter: 2012Q4

REPORT INFORMATION
  Report Type: Spontaneous
  Country: US (occurrence: None)
  Receive Date: 20121205
  Receipt Date: 20121205
  Transmission Date: 20130627
  Serious: No
  Sender: FDA-Public Use
  Company Number: None

PATIENT
  Age: 82 Year
  Sex: Female
  Weight: 65.77 kg

DRUGS (1)
  1. LOSARTAN [Suspect]
     Indication: BLOOD PRESSURE
     Dates: start: 20100729, end: 20110806

REACTIONS (12)
  - Cough [None]
  - Flatulence [None]
  - Back pain [None]
  - Arthralgia [None]
  - Fatigue [None]
  - Headache [None]
  - Somnolence [None]
  - Sleep disorder [None]
  - Nervousness [None]
  - Arthritis [None]
  - Insomnia [None]
  - Polymyalgia rheumatica [None]
